FAERS Safety Report 8759665 (Version 2)
Quarter: 2012Q4

REPORT INFORMATION
  Report Type: 
  Country: US (occurrence: US)
  Receive Date: 20120830
  Receipt Date: 20120830
  Transmission Date: 20130627
  Serious: Yes (Other)
  Sender: FDA-Public Use
  Company Number: US-TEVA-354113USA

PATIENT
  Sex: Female

DRUGS (2)
  1. ZIAC [Suspect]
     Route: 048
  2. TOPROL [Suspect]

REACTIONS (2)
  - Aneurysm [Unknown]
  - Drug ineffective [Unknown]
